FAERS Safety Report 11055204 (Version 1)
Quarter: 2015Q2

REPORT INFORMATION
  Report Type: Spontaneous
  Country: US (occurrence: US)
  Receive Date: 20150422
  Receipt Date: 20150422
  Transmission Date: 20150821
  Serious: No
  Sender: FDA-Public Use
  Company Number: US-SA-2015SA029273

PATIENT
  Age: 88 Year
  Sex: Male

DRUGS (5)
  1. MIRAPEX [Concomitant]
     Active Substance: PRAMIPEXOLE DIHYDROCHLORIDE
     Indication: RESTLESS LEGS SYNDROME
  2. TYLENOL [Concomitant]
     Active Substance: ACETAMINOPHEN
  3. LOVENOX [Suspect]
     Active Substance: ENOXAPARIN SODIUM
     Indication: PROPHYLAXIS
     Route: 065
     Dates: start: 20150210
  4. CODEINE [Concomitant]
     Active Substance: CODEINE
  5. ASPIRIN. [Concomitant]
     Active Substance: ASPIRIN

REACTIONS (1)
  - Injection site discolouration [Not Recovered/Not Resolved]

NARRATIVE: CASE EVENT DATE: 201502
